FAERS Safety Report 4523706-2 (Version None)
Quarter: 2004Q4

REPORT INFORMATION
  Report Type: 
  Country: None (occurrence: None)
  Receive Date: 20041210
  Receipt Date: 20041202
  Transmission Date: 20050328
  Serious: Yes (Life-Threatening, Hospitalization)
  Sender: FDA-Public Use
  Company Number: GB-GLAXOSMITHKLINE-B0359029A

PATIENT
  Age: 41 Year
  Sex: Female

DRUGS (3)
  1. ZYBAN [Suspect]
     Indication: SMOKING CESSATION THERAPY
     Dosage: 150MG TWICE PER DAY
     Route: 048
     Dates: start: 20041029, end: 20041117
  2. ALCOHOL [Suspect]
  3. FAMVIR [Concomitant]
     Indication: HERPES VIRUS INFECTION
     Dosage: 750MG PER DAY
     Route: 048
     Dates: start: 20040907

REACTIONS (5)
  - ALCOHOL INTERACTION [None]
  - DEPRESSED MOOD [None]
  - MEDICATION ERROR [None]
  - OVERDOSE [None]
  - SUICIDAL IDEATION [None]
